FAERS Safety Report 13770676 (Version 1)
Quarter: 2017Q3

REPORT INFORMATION
  Report Type: Spontaneous
  Country: US (occurrence: US)
  Receive Date: 20170719
  Receipt Date: 20170719
  Transmission Date: 20171127
  Serious: No
  Sender: FDA-Public Use
  Company Number: US-BAYER-2017-134898

PATIENT
  Sex: Female

DRUGS (1)
  1. CLIMARA PRO [Suspect]
     Active Substance: ESTRADIOL\LEVONORGESTREL
     Dosage: 0.045/0.015 MG
     Route: 062

REACTIONS (4)
  - Application site irritation [None]
  - Product adhesion issue [None]
  - Product physical issue [None]
  - Device breakage [None]
